APPROVED DRUG PRODUCT: WARFARIN SODIUM
Active Ingredient: WARFARIN SODIUM
Strength: 10MG
Dosage Form/Route: TABLET;ORAL
Application: A040415 | Product #009
Applicant: AUROBINDO PHARMA USA INC
Approved: Sep 27, 2004 | RLD: No | RS: No | Type: DISCN